FAERS Safety Report 7329316-6 (Version None)
Quarter: 2011Q1

REPORT INFORMATION
  Report Type: 
  Country: None (occurrence: None)
  Receive Date: 20110218
  Receipt Date: 20110207
  Transmission Date: 20110831
  Serious: Yes (Hospitalization)
  Sender: FDA-Public Use
  Company Number: 027222

PATIENT
  Sex: Male
  Weight: 3.2 kg

DRUGS (4)
  1. KEPPRA [Suspect]
     Indication: EPILEPSY
     Dosage: (2000 MG TRANSPLACENTAL)
     Route: 064
  2. DIAZEPAM [Suspect]
     Indication: EPILEPSY
     Dosage: (20 MG TRANSPLACENTAL)
     Route: 064
  3. FOLIC ACID [Concomitant]
  4. TEGRETOL [Suspect]
     Indication: EPILEPSY
     Dosage: (200 MG TRANSPLACENTAL)
     Route: 064

REACTIONS (2)
  - NEONATAL RESPIRATORY DISTRESS SYNDROME [None]
  - MATERNAL DRUGS AFFECTING FOETUS [None]
